FAERS Safety Report 14353204 (Version 1)
Quarter: 2018Q1

REPORT INFORMATION
  Report Type: Spontaneous
  Country: AU (occurrence: AU)
  Receive Date: 20180105
  Receipt Date: 20180105
  Transmission Date: 20180509
  Serious: Yes (Death, Hospitalization, Other)
  Sender: FDA-Public Use
  Company Number: AU-CONCORDIA PHARMACEUTICALS INC.-GSH201712-006717

PATIENT
  Age: 64 Year
  Sex: Female
  Weight: 48 kg

DRUGS (7)
  1. METOPROLOL. [Concomitant]
     Active Substance: METOPROLOL
  2. HYDROXYCHLOROQUINE [Suspect]
     Active Substance: HYDROXYCHLOROQUINE
     Indication: RHEUMATOID ARTHRITIS
     Route: 048
  3. CALCIUM [Concomitant]
     Active Substance: CALCIUM
  4. ASPIRIN. [Concomitant]
     Active Substance: ASPIRIN
     Dosage: LOW-DOSE
  5. MEDROXYPROGESTERONE [Concomitant]
     Active Substance: MEDROXYPROGESTERONE
     Indication: HORMONE REPLACEMENT THERAPY
  6. VITAMIN D [Concomitant]
     Active Substance: CHOLECALCIFEROL
  7. OESTRADIOL VALERATE [Concomitant]
     Active Substance: ESTRADIOL VALERATE
     Indication: HORMONE REPLACEMENT THERAPY

REACTIONS (12)
  - Neurological decompensation [Unknown]
  - Thrombocytopenia [Unknown]
  - Haemolytic anaemia [Unknown]
  - Pyrexia [Unknown]
  - Cerebral ischaemia [Unknown]
  - Ataxia [Unknown]
  - Muscular weakness [Unknown]
  - Chills [Unknown]
  - Confusional state [Unknown]
  - Urine output decreased [Unknown]
  - Thrombotic thrombocytopenic purpura [Fatal]
  - Renal impairment [Unknown]
